FAERS Safety Report 7021187-0 (Version None)
Quarter: 2010Q3

REPORT INFORMATION
  Report Type: 
  Country: None (occurrence: None)
  Receive Date: 20100929
  Receipt Date: 20100923
  Transmission Date: 20110219
  Serious: Yes (Other)
  Sender: FDA-Public Use
  Company Number: CHPA2010GB15130

PATIENT
  Sex: Female

DRUGS (1)
  1. OTRIVIN [Suspect]
     Dosage: UNK, UNK
     Route: 045
     Dates: start: 20100901

REACTIONS (1)
  - SKIN REACTION [None]
